FAERS Safety Report 5549290-2 (Version None)
Quarter: 2007Q4

REPORT INFORMATION
  Report Type: 
  Country: None (occurrence: None)
  Receive Date: 20071211
  Receipt Date: 20071129
  Transmission Date: 20080405
  Serious: Yes (Other)
  Sender: FDA-Public Use
  Company Number: AU-ELI_LILLY_AND_COMPANY-AU200711003684

PATIENT
  Sex: Male

DRUGS (7)
  1. HUMALOG [Suspect]
     Dosage: 10-20 U, EACH MORNING
     Route: 058
     Dates: start: 20070501
  2. HUMALOG [Suspect]
     Dosage: 5-6 U, LUNCH
     Route: 058
     Dates: start: 20070501
  3. HUMALOG [Suspect]
     Dosage: 9-16 U, EACH EVENING
     Dates: start: 20070501
  4. HUMALOG [Suspect]
     Dosage: 34 U, BEFORE GOING TO BED
     Route: 058
     Dates: start: 20071101
  5. HUMALOG [Suspect]
     Dosage: 24 U, WITH DINNER
     Dates: start: 20071101
  6. LANTUS [Concomitant]
     Dosage: 38 U, AT BED TIME
     Dates: start: 20060101
  7. LANTUS [Concomitant]
     Dosage: 24 U, BED TIME

REACTIONS (6)
  - BLOOD GLUCOSE DECREASED [None]
  - BLOOD GLUCOSE INCREASED [None]
  - BLOOD PRESSURE INCREASED [None]
  - DIABETES MELLITUS INADEQUATE CONTROL [None]
  - MALAISE [None]
  - WRONG DRUG ADMINISTERED [None]
